FAERS Safety Report 24661055 (Version 2)
Quarter: 2025Q1

REPORT INFORMATION
  Report Type: Spontaneous
  Country: US (occurrence: US)
  Receive Date: 20241125
  Receipt Date: 20250227
  Transmission Date: 20250409
  Serious: No
  Sender: AVADEL CNS PHARMACEUTICALS, LLC
  Company Number: US-AVADEL CNS PHARMACEUTICALS, LLC-2024AVA01757

PATIENT
  Sex: Male

DRUGS (4)
  1. LUMRYZ [Suspect]
     Active Substance: SODIUM OXYBATE
     Indication: Narcolepsy
     Dosage: 9 G, ONCE NIGHTLY
     Route: 048
     Dates: end: 202410
  2. CYCLOBENZAPRINE HYDROCHLORIDE [Concomitant]
     Active Substance: CYCLOBENZAPRINE HYDROCHLORIDE
  3. BACLOFEN [Concomitant]
     Active Substance: BACLOFEN
  4. MODAFINIL [Concomitant]
     Active Substance: MODAFINIL

REACTIONS (9)
  - Middle insomnia [Unknown]
  - Feeling abnormal [Unknown]
  - Balance disorder [Unknown]
  - Joint injury [Unknown]
  - Feeling drunk [Unknown]
  - Nocturia [Unknown]
  - Sleep apnoea syndrome [Unknown]
  - Therapeutic product effect decreased [Recovered/Resolved]
  - Drug effect faster than expected [Recovered/Resolved]
